FAERS Safety Report 8008460-4 (Version None)
Quarter: 2011Q4

REPORT INFORMATION
  Report Type: 
  Country: None (occurrence: None)
  Receive Date: 20111227
  Receipt Date: 20111221
  Transmission Date: 20120403
  Serious: No
  Sender: FDA-Public Use
  Company Number: US-BAYER-2011-123361

PATIENT

DRUGS (3)
  1. ALEVE (CAPLET) [Suspect]
     Indication: BACK PAIN
  2. ALEVE (CAPLET) [Suspect]
     Indication: NECK PAIN
     Dosage: 3 DF, ONCE
     Dates: start: 20111220
  3. ALEVE (CAPLET) [Suspect]
     Indication: ARTHRALGIA

REACTIONS (1)
  - NO ADVERSE EVENT [None]
